FAERS Safety Report 4662391-6 (Version None)
Quarter: 2005Q2

REPORT INFORMATION
  Report Type: 
  Country: None (occurrence: None)
  Receive Date: 20050512
  Receipt Date: 20050429
  Transmission Date: 20051028
  Serious: Yes (Other)
  Sender: FDA-Public Use
  Company Number: 2005069081

PATIENT
  Age: 49 Year
  Sex: Male

DRUGS (7)
  1. FELDENE [Suspect]
     Indication: ALLERGY TEST
     Dosage: ORAL
     Route: 048
  2. NAPROXEN [Suspect]
     Indication: SENILE ANKYLOSING VERTEBRAL HYPEROSTOSIS
  3. KETOPROFEN [Suspect]
     Indication: SENILE ANKYLOSING VERTEBRAL HYPEROSTOSIS
  4. OMEPRAZOLE [Suspect]
     Indication: SENILE ANKYLOSING VERTEBRAL HYPEROSTOSIS
  5. DIPROSPAN (BETAMETHASONE DIPROPIONATE, BETAMETHASONE SODIUM PHOSPHATE) [Suspect]
     Indication: SENILE ANKYLOSING VERTEBRAL HYPEROSTOSIS
  6. KETOPROFEN [Suspect]
     Indication: ILL-DEFINED DISORDER
  7. ALL OTHER THERAPEUTIC PRODUCTS (ALL OTHER THERAPEUTIC PRODUCTS) [Concomitant]

REACTIONS (2)
  - TOXIC SKIN ERUPTION [None]
  - TYPE IV HYPERSENSITIVITY REACTION [None]
